FAERS Safety Report 5900400-4 (Version None)
Quarter: 2008Q3

REPORT INFORMATION
  Report Type: 
  Country: None (occurrence: None)
  Receive Date: 20080926
  Receipt Date: 20080915
  Transmission Date: 20090109
  Serious: Yes (Other)
  Sender: FDA-Public Use
  Company Number: US-PFIZER INC-2008078277

PATIENT
  Sex: Male
  Weight: 79.4 kg

DRUGS (4)
  1. NEURONTIN [Suspect]
     Indication: SJOGREN'S SYNDROME
     Dosage: TEXT:EVERYDAY
     Route: 048
     Dates: start: 20040101
  2. LYRICA [Suspect]
     Indication: SJOGREN'S SYNDROME
     Route: 048
     Dates: start: 20060101
  3. CORTICOSTEROIDS [Concomitant]
  4. FENTANYL [Concomitant]

REACTIONS (1)
  - MOBILITY DECREASED [None]
